FAERS Safety Report 22400092 (Version 1)
Quarter: 2023Q2

REPORT INFORMATION
  Report Type: Report from Study
  Country: DE (occurrence: DE)
  Receive Date: 20230602
  Receipt Date: 20230602
  Transmission Date: 20230722
  Serious: Yes (Hospitalization)
  Sender: FDA-Public Use
  Company Number: DE-PHARMAESSENTIA CORPORATION-DE-2023-PEC-001478

PATIENT

DRUGS (15)
  1. BESREMI [Suspect]
     Active Substance: ROPEGINTERFERON ALFA-2B-NJFT
     Indication: Polycythaemia vera
     Dosage: 100 MICROGRAM, Q2W
     Route: 058
     Dates: start: 20210611, end: 20210625
  2. BESREMI [Suspect]
     Active Substance: ROPEGINTERFERON ALFA-2B-NJFT
     Dosage: 150 MICROGRAM, Q2W
     Route: 058
     Dates: start: 20210625, end: 20210626
  3. BESREMI [Suspect]
     Active Substance: ROPEGINTERFERON ALFA-2B-NJFT
     Dosage: 150 MICROGRAM, Q2W
     Route: 058
     Dates: start: 20210723, end: 20210806
  4. BESREMI [Suspect]
     Active Substance: ROPEGINTERFERON ALFA-2B-NJFT
     Dosage: 200 MICROGRAM, Q2W
     Route: 058
     Dates: start: 20210806, end: 20210924
  5. BESREMI [Suspect]
     Active Substance: ROPEGINTERFERON ALFA-2B-NJFT
     Dosage: 50 MICROGRAM, Q2W
     Route: 058
     Dates: start: 20220401, end: 20220615
  6. BESREMI [Suspect]
     Active Substance: ROPEGINTERFERON ALFA-2B-NJFT
     Dosage: 100 MICROGRAM, Q2W
     Route: 058
     Dates: start: 20220615, end: 20220701
  7. MARCUMAR [Concomitant]
     Active Substance: PHENPROCOUMON
     Indication: Prophylaxis
     Dosage: UNK
     Route: 048
     Dates: start: 202101
  8. LEVOTHYROXINE SODIUM [Concomitant]
     Active Substance: LEVOTHYROXINE SODIUM
     Indication: Hypothyroidism
     Dosage: 75 MICROGRAM, QD
     Route: 048
     Dates: start: 2010
  9. CHOLECALCIFEROL [Concomitant]
     Active Substance: CHOLECALCIFEROL
     Indication: Vitamin D deficiency
     Dosage: 1000 INTERNATIONAL UNIT, QD
     Route: 048
     Dates: start: 202107
  10. NOVALGIN (METAMIZOLE SODIUM) [Concomitant]
     Active Substance: METAMIZOLE SODIUM
     Indication: Pain
     Dosage: 500 MILLIGRAM, QD
     Route: 048
     Dates: start: 20210910, end: 20211228
  11. MAGNESIUM [Concomitant]
     Active Substance: MAGNESIUM
     Indication: Magnesium deficiency
     Dosage: 300 MILLIGRAM, QD
     Route: 048
     Dates: start: 202107
  12. ELIDEL [Concomitant]
     Active Substance: PIMECROLIMUS
     Indication: Rash
     Dosage: UNK, QD
     Route: 061
     Dates: start: 20210915
  13. PREDNISOLONE [Concomitant]
     Active Substance: PREDNISOLONE
     Indication: Thrombocytopenia
     Dosage: 70 MILLIGRAM, QD
     Route: 048
     Dates: start: 20211129, end: 20211206
  14. COMIRNATY [Concomitant]
     Active Substance: TOZINAMERAN
     Indication: COVID-19 prophylaxis
     Dosage: 30 MICROGRAM, SINGLE
     Route: 030
     Dates: start: 202202, end: 202202
  15. DABIGATRAN [Concomitant]
     Active Substance: DABIGATRAN
     Indication: Cavernous sinus thrombosis
     Dosage: 300 MILLIGRAM, QD
     Route: 065
     Dates: start: 20220521

REACTIONS (3)
  - Visual impairment [Recovered/Resolved]
  - Vertigo [Recovered/Resolved]
  - Headache [Recovered/Resolved]

NARRATIVE: CASE EVENT DATE: 20211204
